FAERS Safety Report 15668423 (Version 4)
Quarter: 2019Q1

REPORT INFORMATION
  Report Type: Report from Study
  Country: DE (occurrence: DE)
  Receive Date: 20181129
  Receipt Date: 20190118
  Transmission Date: 20190417
  Serious: Yes (Death, Other)
  Sender: FDA-Public Use
  Company Number: DE-BRISTOL-MYERS SQUIBB COMPANY-BMS-2018-112327

PATIENT
  Age: 48 Year
  Sex: Male

DRUGS (2)
  1. NIVOLUMAB [Suspect]
     Active Substance: NIVOLUMAB
     Indication: MALIGNANT MELANOMA
     Dosage: 70 MG, Q3WK
     Route: 042
     Dates: start: 20171025, end: 20171228
  2. IPILIMUMAB [Suspect]
     Active Substance: IPILIMUMAB
     Indication: MALIGNANT MELANOMA
     Dosage: 210 MG, Q3WK
     Route: 065
     Dates: start: 20171025, end: 20171225

REACTIONS (1)
  - Death [Fatal]
